FAERS Safety Report 9258453 (Version 1)
Quarter: 2013Q2

REPORT INFORMATION
  Report Type: Spontaneous
  Country: AT (occurrence: AT)
  Receive Date: 20130426
  Receipt Date: 20130426
  Transmission Date: 20140414
  Serious: Yes (Hospitalization, Other)
  Sender: FDA-Public Use
  Company Number: PHHY2013AT037730

PATIENT
  Sex: Male

DRUGS (14)
  1. MYCOPHENOLIC ACID [Suspect]
     Indication: RENAL TRANSPLANT
     Dosage: 1440 MG, UNK
  2. MYCOPHENOLIC ACID [Suspect]
     Dosage: 360 MG, UNK
  3. MYCOPHENOLIC ACID [Suspect]
     Dosage: 720 MG, UNK
  4. MYCOPHENOLIC ACID [Suspect]
     Dosage: 360 MG, BID
  5. MYCOPHENOLIC ACID [Suspect]
     Dosage: 180 MG, BID
  6. MYCOPHENOLIC ACID [Suspect]
     Dosage: 540 MG, UNK
  7. CARVEDILOL [Concomitant]
  8. RILMENIDINE [Concomitant]
  9. CICLOSPORIN [Concomitant]
     Indication: IMMUNOSUPPRESSION
  10. PREDNISOLON [Concomitant]
     Dosage: UNK
  11. PREDNISOLON [Concomitant]
     Dosage: 5 MG, UNK
  12. AMLODIPINE [Concomitant]
  13. VALSARTAN [Concomitant]
  14. HYDROCHLOROTHIAZIDE [Concomitant]
     Indication: HYPERTENSION

REACTIONS (9)
  - Interstitial lung disease [Recovering/Resolving]
  - Malaise [Unknown]
  - Bronchitis [Recovering/Resolving]
  - Arthralgia [Unknown]
  - Pyrexia [Recovered/Resolved]
  - Cough [Recovering/Resolving]
  - Inflammation [Unknown]
  - Cytomegalovirus infection [Unknown]
  - Kidney transplant rejection [Unknown]
